FAERS Safety Report 6687098-5 (Version None)
Quarter: 2010Q2

REPORT INFORMATION
  Report Type: 
  Country: None (occurrence: None)
  Receive Date: 20100414
  Receipt Date: 20100331
  Transmission Date: 20101027
  Serious: Yes (Life-Threatening, Other)
  Sender: FDA-Public Use
  Company Number: 2010SCPR000479

PATIENT
  Age: 24 Year
  Sex: Male

DRUGS (1)
  1. PROPRANOLOL [Suspect]
     Indication: DRUG USE FOR UNKNOWN INDICATION
     Dosage: 2.28 G, ORAL
     Route: 048

REACTIONS (3)
  - BRUGADA SYNDROME [None]
  - DRUG TOXICITY [None]
  - SUICIDE ATTEMPT [None]
